FAERS Safety Report 23049898 (Version 1)
Quarter: 2023Q4

REPORT INFORMATION
  Report Type: Spontaneous
  Country: CA (occurrence: None)
  Receive Date: 20231010
  Receipt Date: 20231010
  Transmission Date: 20240110
  Serious: Yes (Other)
  Sender: FDA-Public Use
  Company Number: 2023A227683

PATIENT
  Age: 49 Year
  Sex: Female
  Weight: 60 kg

DRUGS (1)
  1. QUETIAPINE [Suspect]
     Active Substance: QUETIAPINE
     Indication: Depression
     Route: 048

REACTIONS (2)
  - Abdominal pain upper [Recovered/Resolved]
  - Headache [Recovered/Resolved]
